FAERS Safety Report 4471718-X (Version None)
Quarter: 2004Q4

REPORT INFORMATION
  Report Type: 
  Country: None (occurrence: None)
  Receive Date: 20041012
  Receipt Date: 20041001
  Transmission Date: 20050328
  Serious: Yes (Hospitalization)
  Sender: FDA-Public Use
  Company Number: FR-ROCHE-381848

PATIENT
  Age: 84 Year
  Sex: Female

DRUGS (8)
  1. TICLID [Suspect]
     Indication: DRUG USE FOR UNKNOWN INDICATION
     Route: 048
     Dates: start: 19960701, end: 20040728
  2. TRIATEC [Suspect]
     Indication: DRUG USE FOR UNKNOWN INDICATION
     Route: 048
     Dates: start: 20040721, end: 20040726
  3. TRIATEC [Suspect]
     Route: 048
     Dates: start: 20040712, end: 20040720
  4. PIPRAM FORT [Concomitant]
     Route: 048
     Dates: start: 20040716, end: 20040723
  5. PARACETAMOL [Concomitant]
     Route: 048
  6. MONO-TILDIEM LP [Concomitant]
     Route: 048
  7. NITROGLYCERIN [Concomitant]
     Route: 062
  8. EURELIX [Concomitant]
     Dosage: THERAPY DURATION REPORTED AS A FEW YEARS.
     Route: 048
     Dates: start: 20020615, end: 20040410

REACTIONS (1)
  - TONGUE OEDEMA [None]
